FAERS Safety Report 24924481 (Version 1)
Quarter: 2025Q1

REPORT INFORMATION
  Report Type: Spontaneous
  Country: US (occurrence: US)
  Receive Date: 20250204
  Receipt Date: 20250204
  Transmission Date: 20250408
  Serious: Yes (Hospitalization, Other)
  Sender: ORIENT PHARMA
  Company Number: US-Orient Pharma-000308

PATIENT
  Age: 59 Year
  Sex: Female

DRUGS (7)
  1. VANCOMYCIN [Suspect]
     Active Substance: VANCOMYCIN
     Indication: Clostridium difficile colitis
     Route: 048
     Dates: start: 20181118
  2. VORICONAZOLE [Concomitant]
     Active Substance: VORICONAZOLE
  3. LEVOTHYROXINE [Concomitant]
     Active Substance: LEVOTHYROXINE
  4. MEROPENEM [Concomitant]
     Active Substance: MEROPENEM
  5. METRONIDAZOLE [Concomitant]
     Active Substance: METRONIDAZOLE
     Route: 042
  6. VANCOMYCIN [Suspect]
     Active Substance: VANCOMYCIN
     Indication: Clostridium difficile colitis
     Route: 054
     Dates: start: 20181118, end: 20181125
  7. VANCOMYCIN [Suspect]
     Active Substance: VANCOMYCIN
     Indication: Clostridium difficile colitis
     Route: 054
     Dates: start: 20181125, end: 20181202

REACTIONS (5)
  - Drug level increased [Unknown]
  - Toxicity to various agents [Unknown]
  - Renal impairment [Unknown]
  - Paralysis [Unknown]
  - Hypoacusis [Unknown]
